FAERS Safety Report 4616427-9 (Version None)
Quarter: 2005Q1

REPORT INFORMATION
  Report Type: 
  Country: None (occurrence: None)
  Receive Date: 20050318
  Receipt Date: 20050305
  Transmission Date: 20050727
  Serious: Yes (Hospitalization, Disabling, Other)
  Sender: FDA-Public Use
  Company Number: 2005042083

PATIENT
  Age: 62 Year
  Sex: Female
  Weight: 61.2356 kg

DRUGS (9)
  1. NEURONTIN [Suspect]
     Indication: POOR PERIPHERAL CIRCULATION
     Dosage: 300 MG (100 MG, 3 IN 1 D), ORAL
     Route: 048
  2. CLONIDINE [Concomitant]
  3. PROPRANOLOL [Concomitant]
  4. NITROGLYCERIN [Concomitant]
  5. EZETIMIBE (EZETIMIBE) [Concomitant]
  6. ALENDRONATE SODIUM [Concomitant]
  7. ROSUVASTATIN (ROSUVASTATIN) [Concomitant]
  8. APOREX (DEXTROPROPOXYPHENE HYDROCHLORIDE, PARACETAMOL) [Concomitant]
  9. VALPROATE SODIUM [Concomitant]

REACTIONS (2)
  - CEREBROVASCULAR ACCIDENT [None]
  - HEMIPARESIS [None]
